FAERS Safety Report 8032659-4 (Version None)
Quarter: 2012Q1

REPORT INFORMATION
  Report Type: 
  Country: None (occurrence: None)
  Receive Date: 20120110
  Receipt Date: 20111128
  Transmission Date: 20120608
  Serious: No
  Sender: FDA-Public Use
  Company Number: US-COVIDIEN/TYCO HEALTHCARE/MALLINCKRODT-T201102748

PATIENT
  Sex: Male

DRUGS (4)
  1. SIMVASTATIN [Concomitant]
     Dosage: UNK
  2. VITAMINS                           /90003601/ [Concomitant]
     Dosage: UNK
  3. WELLBUTRIN [Concomitant]
     Dosage: UNK
  4. OPTIRAY 160 [Suspect]
     Indication: COMPUTERISED TOMOGRAM
     Dosage: 125 ML, SINGLE
     Route: 042
     Dates: start: 20110916, end: 20110916

REACTIONS (3)
  - TACHYPNOEA [None]
  - CHEST DISCOMFORT [None]
  - DYSPNOEA [None]
